FAERS Safety Report 24289855 (Version 6)
Quarter: 2024Q4

REPORT INFORMATION
  Report Type: Spontaneous
  Country: US (occurrence: US)
  Receive Date: 20240906
  Receipt Date: 20241113
  Transmission Date: 20250114
  Serious: No
  Sender: AMGEN
  Company Number: US-AMGEN-USASP2024176244

PATIENT
  Age: 62 Year
  Sex: Female

DRUGS (2)
  1. TEPEZZA [Suspect]
     Active Substance: TEPROTUMUMAB-TRBW
     Indication: Endocrine ophthalmopathy
     Dosage: 1 DOSAGE FORM, Q3WK (1X FOR 8 INFUSIONS )
     Route: 042
     Dates: start: 20240829
  2. TEPEZZA [Suspect]
     Active Substance: TEPROTUMUMAB-TRBW
     Dosage: 1 DOSAGE FORM, Q3WK FOURTH INFUSION
     Route: 040
     Dates: start: 2024

REACTIONS (4)
  - Diplopia [Unknown]
  - Concussion [Unknown]
  - Lethargy [Not Recovered/Not Resolved]
  - Fatigue [Unknown]

NARRATIVE: CASE EVENT DATE: 20240101
